FAERS Safety Report 7393145-8 (Version None)
Quarter: 2011Q2

REPORT INFORMATION
  Report Type: 
  Country: None (occurrence: None)
  Receive Date: 20110404
  Receipt Date: 20110328
  Transmission Date: 20111010
  Serious: No
  Sender: FDA-Public Use
  Company Number: US-RB-014649-10

PATIENT
  Age: 58 Year
  Sex: Male

DRUGS (2)
  1. SUBOXONE [Suspect]
     Indication: DRUG DEPENDENCE
     Dosage: EXACT DOSING INFORMATION UNKNOWN
     Route: 060
  2. SUBOXONE FILMS [Suspect]
     Indication: DRUG DEPENDENCE
     Dosage: SUBLINGUAL FILM- VARIABLE DECREASING DOSES
     Route: 065
     Dates: end: 20110301

REACTIONS (16)
  - PAIN IN EXTREMITY [None]
  - EMOTIONAL DISORDER [None]
  - WEIGHT DECREASED [None]
  - NAUSEA [None]
  - SOMNOLENCE [None]
  - MUSCULOSKELETAL DISCOMFORT [None]
  - GOUT [None]
  - INTENTIONAL DRUG MISUSE [None]
  - CHEST PAIN [None]
  - PRE-EXISTING CONDITION IMPROVED [None]
  - SKIN INFECTION [None]
  - CARDIAC DISORDER [None]
  - MUSCLE TWITCHING [None]
  - TOBACCO USER [None]
  - RETCHING [None]
  - DEPRESSION [None]
